FAERS Safety Report 7879863-3 (Version None)
Quarter: 2011Q4

REPORT INFORMATION
  Report Type: 
  Country: None (occurrence: None)
  Receive Date: 20111101
  Receipt Date: 20111024
  Transmission Date: 20120403
  Serious: Yes (Hospitalization, Other)
  Sender: FDA-Public Use
  Company Number: PL-ROCHE-1000470

PATIENT
  Sex: Female
  Weight: 98 kg

DRUGS (2)
  1. PEGASYS [Suspect]
     Indication: HEPATITIS C
     Route: 058
     Dates: start: 20101210, end: 20110318
  2. COPEGUS [Concomitant]
     Indication: HEPATITIS C
     Route: 048
     Dates: start: 20101210, end: 20110325

REACTIONS (10)
  - MENINGITIS ASEPTIC [None]
  - DRUG INEFFECTIVE [None]
  - RASH [None]
  - SINUSITIS [None]
  - ENCEPHALITIS [None]
  - HYPERSENSITIVITY [None]
  - PAPULE [None]
  - SOFT TISSUE INFLAMMATION [None]
  - MALAISE [None]
  - OEDEMA [None]
